FAERS Safety Report 26136900 (Version 1)
Quarter: 2025Q4

REPORT INFORMATION
  Report Type: Spontaneous
  Country: US (occurrence: None)
  Receive Date: 20251209
  Receipt Date: 20251209
  Transmission Date: 20260118
  Serious: No
  Sender: HALOZYME
  Company Number: US-HALOZYME THERAPEUTICS, INC.-2024-US-TX -11417

PATIENT
  Weight: 63.492 kg

DRUGS (2)
  1. XYOSTED [Suspect]
     Active Substance: TESTOSTERONE ENANTHATE
     Indication: Erectile dysfunction
     Dosage: 100 MG/0.5ML, Q 1 WK
     Route: 058
  2. XYOSTED [Suspect]
     Active Substance: TESTOSTERONE ENANTHATE
     Indication: Blood testosterone decreased

REACTIONS (2)
  - Nipple enlargement [Unknown]
  - Off label use [Unknown]
